FAERS Safety Report 7219157-2 (Version None)
Quarter: 2011Q1

REPORT INFORMATION
  Report Type: 
  Country: None (occurrence: None)
  Receive Date: 20110111
  Receipt Date: 20101228
  Transmission Date: 20110831
  Serious: Yes (Other)
  Sender: FDA-Public Use
  Company Number: US-RANBAXY-2010RR-40726

PATIENT
  Sex: Female

DRUGS (5)
  1. CIPROFLAXACIN [Suspect]
     Indication: INFECTION
     Dosage: 500 MG, UNK
     Route: 065
  2. LEVAQUIN [Suspect]
     Indication: EAR INFECTION
  3. LEVAQUIN [Suspect]
     Indication: URINARY TRACT INFECTION
  4. LEVAQUIN [Suspect]
     Indication: SINUSITIS
     Dosage: UNK
     Route: 048
     Dates: start: 20050707, end: 20091029
  5. METHYLPREDNISOLONE [Concomitant]
     Dosage: UNK

REACTIONS (8)
  - MUSCLE STRAIN [None]
  - BURSITIS [None]
  - TENOSYNOVITIS STENOSANS [None]
  - PLANTAR FASCIITIS [None]
  - TENDONITIS [None]
  - ROTATOR CUFF SYNDROME [None]
  - TENDON DISORDER [None]
  - DRUG INEFFECTIVE [None]
